FAERS Safety Report 24433477 (Version 1)
Quarter: 2024Q4

REPORT INFORMATION
  Report Type: Spontaneous
  Country: PL (occurrence: PL)
  Receive Date: 20241014
  Receipt Date: 20241014
  Transmission Date: 20250115
  Serious: Yes (Other)
  Sender: TEVA
  Company Number: None

PATIENT
  Age: 29 Year
  Sex: Female
  Weight: 55 kg

DRUGS (3)
  1. EMTRICITABINE\TENOFOVIR [Suspect]
     Active Substance: EMTRICITABINE\TENOFOVIR
     Indication: Exposure to communicable disease
     Dosage: 1X1
     Route: 048
     Dates: start: 20200123, end: 20200201
  2. DARUNAVIR [Suspect]
     Active Substance: DARUNAVIR
     Indication: Exposure to communicable disease
     Dosage: 1X1:
     Route: 048
     Dates: start: 20200123, end: 20200201
  3. RITONAVIR [Suspect]
     Active Substance: RITONAVIR
     Indication: Exposure to communicable disease
     Dosage: 1X1
     Route: 048
     Dates: start: 20200123, end: 20200201

REACTIONS (2)
  - Rash maculo-papular [Recovering/Resolving]
  - Enzyme activity increased [Recovering/Resolving]

NARRATIVE: CASE EVENT DATE: 20200131
